FAERS Safety Report 5386704-5 (Version None)
Quarter: 2007Q3

REPORT INFORMATION
  Report Type: 
  Country: None (occurrence: None)
  Receive Date: 20070713
  Receipt Date: 20070703
  Transmission Date: 20080115
  Serious: Yes (Death)
  Sender: FDA-Public Use
  Company Number: AU-ABBOTT-07P-008-0373393-00

PATIENT
  Age: 62 Year
  Sex: Female

DRUGS (5)
  1. CYCLOSPORINE [Suspect]
     Indication: IMMUNOSUPPRESSION
     Dosage: NOT REPORTED
  2. T CELL INFUSION [Concomitant]
     Indication: ACUTE GRAFT VERSUS HOST DISEASE IN SKIN
     Dosage: NOT REPORTED
  3. PREDNISOLONE [Concomitant]
     Indication: GRAFT VERSUS HOST DISEASE
  4. PREDNISOLONE [Concomitant]
     Indication: MULTI-ORGAN FAILURE
  5. PREDNISOLONE [Concomitant]
     Indication: THROMBOCYTOPENIC PURPURA

REACTIONS (1)
  - THROMBOTIC THROMBOCYTOPENIC PURPURA [None]
